FAERS Safety Report 17660025 (Version 1)
Quarter: 2020Q2

REPORT INFORMATION
  Report Type: Spontaneous
  Country: US (occurrence: US)
  Receive Date: 20200410
  Receipt Date: 20200410
  Transmission Date: 20200713
  Serious: No
  Sender: FDA-Public Use
  Company Number: None

PATIENT
  Sex: Female

DRUGS (1)
  1. GLATIRAMER ACETATE (12X1ML) [Suspect]
     Active Substance: GLATIRAMER ACETATE
     Indication: MULTIPLE SCLEROSIS
     Route: 058
     Dates: start: 20191030

REACTIONS (8)
  - Dehydration [None]
  - Asthenia [None]
  - Arthralgia [None]
  - Peripheral swelling [None]
  - Tenderness [None]
  - Herpes zoster [None]
  - Migraine [None]
  - Nausea [None]
